FAERS Safety Report 5566699-1 (Version None)
Quarter: 2007Q4

REPORT INFORMATION
  Report Type: 
  Country: None (occurrence: None)
  Receive Date: 20071219
  Receipt Date: 20071211
  Transmission Date: 20080405
  Serious: Yes (Hospitalization)
  Sender: FDA-Public Use
  Company Number: JP-MERCK-0712USA05279

PATIENT
  Age: 66 Year
  Sex: Male

DRUGS (2)
  1. FAMOTIDINE [Suspect]
     Indication: GASTRIC ULCER
     Route: 048
     Dates: start: 20070801, end: 20070101
  2. UFT [Suspect]
     Route: 048
     Dates: start: 20070801, end: 20070101

REACTIONS (1)
  - THROMBOCYTOPENIC PURPURA [None]
